FAERS Safety Report 14812942 (Version 2)
Quarter: 2018Q4

REPORT INFORMATION
  Report Type: Spontaneous
  Country: FR (occurrence: FR)
  Receive Date: 20180426
  Receipt Date: 20181026
  Transmission Date: 20190204
  Serious: Yes (Other)
  Sender: FDA-Public Use
  Company Number: FR-MERCK KGAA-2046531

PATIENT
  Age: 65 Year
  Sex: Female

DRUGS (1)
  1. EUTHYROX [Suspect]
     Active Substance: LEVOTHYROXINE SODIUM
     Indication: HYPOTHYROIDISM

REACTIONS (27)
  - Social avoidant behaviour [None]
  - Alopecia [None]
  - Blood thyroid stimulating hormone decreased [None]
  - Feeling abnormal [None]
  - Pain [None]
  - Memory impairment [None]
  - Feeling drunk [None]
  - Headache [None]
  - Balance disorder [None]
  - Loss of personal independence in daily activities [None]
  - Amnesia [None]
  - Irritability [None]
  - Social fear [None]
  - Insomnia [None]
  - Weight increased [None]
  - Hair colour changes [None]
  - Drug intolerance [None]
  - Psychopathic personality [None]
  - Fatigue [None]
  - Suicidal ideation [None]
  - Depression [None]
  - Dizziness [None]
  - Self esteem decreased [None]
  - Increased appetite [None]
  - Disturbance in attention [None]
  - Nausea [None]
  - Anxiety [None]

NARRATIVE: CASE EVENT DATE: 20171014
